FAERS Safety Report 10751997 (Version 5)
Quarter: 2015Q3

REPORT INFORMATION
  Report Type: Report from Study
  Country: TR (occurrence: TR)
  Receive Date: 20150130
  Receipt Date: 20150720
  Transmission Date: 20151125
  Serious: Yes (Hospitalization)
  Sender: FDA-Public Use
  Company Number: TR-MERZ NORTH AMERICA, INC.-15MRZ-00063

PATIENT
  Age: 17 Year
  Sex: Male
  Weight: 50 kg

DRUGS (9)
  1. RIVOTRIL [Concomitant]
     Active Substance: CLONAZEPAM
     Dosage: 2 TABLETS (1 DOSAGE FORMS, 2 IN 1 D)
     Dates: start: 201411
  2. XEOMIN [Suspect]
     Active Substance: INCOBOTULINUMTOXINA
     Dosage: 500 IU, 1 IN 1 TOTAL ?FIRST INJECTION VISIT 2
     Route: 030
     Dates: start: 20140819, end: 20140819
  3. XEOMIN [Suspect]
     Active Substance: INCOBOTULINUMTOXINA
     Indication: MUSCLE SPASTICITY
     Dosage: 500 IU, 1 IN 1 TOTAL
     Route: 030
     Dates: start: 20141119, end: 20141119
  4. DEMIZOLAM [Concomitant]
     Dosage: 5MG AS REQUIRED
     Dates: start: 201411
  5. XAMATE [Concomitant]
     Dosage: 50MG (50MG, 1 IN 1 D)?100MG (50MG, 2 IN 1 D)?150MG (50MG, 3 IN 1 D)?200MG (50MG, 2 IN 1 D)
     Dates: start: 201411
  6. DEPAKIN [Concomitant]
     Active Substance: VALPROATE SODIUM
     Dosage: 1500MG (750 MG, 2 IN 1 D)
     Dates: start: 201411
  7. LEV-END [Concomitant]
     Dosage: 1000 MG (500MG, 2 IN 1 D)
  8. EPITOIN [Concomitant]
     Dosage: 2 AMPOULES (1 DOSAGE FORMS, 2 IN 1 D)
     Dates: start: 201411
  9. PHENYTOIN. [Concomitant]
     Active Substance: PHENYTOIN
     Indication: SEIZURE
     Dosage: 25MG/KG
     Route: 042

REACTIONS (1)
  - Seizure [None]

NARRATIVE: CASE EVENT DATE: 20141228
